FAERS Safety Report 15101168 (Version 14)
Quarter: 2019Q2

REPORT INFORMATION
  Report Type: Spontaneous
  Country: CA (occurrence: CA)
  Receive Date: 20180703
  Receipt Date: 20190410
  Transmission Date: 20190711
  Serious: Yes (Other)
  Sender: FDA-Public Use
  Company Number: CA-CELLTRION INC.-2018CA020718

PATIENT

DRUGS (30)
  1. METOPROLOL. [Concomitant]
     Active Substance: METOPROLOL
     Dosage: 25 MG, BID
     Route: 048
  2. ESCITALOPRAM [Concomitant]
     Active Substance: ESCITALOPRAM OXALATE
     Dosage: 10 MG, QD
     Route: 048
  3. MEZAVANT [Concomitant]
     Active Substance: MESALAMINE
     Dosage: 2.4 MG
     Route: 048
  4. INFLECTRA [Suspect]
     Active Substance: INFLIXIMAB-DYYB
     Dosage: 400 MG, (0, 2, 6 THEN EVERY 8 WEEKS)
     Route: 042
     Dates: start: 20180618
  5. 5 ASA LP [Concomitant]
     Dosage: 400 MG, TID
     Route: 048
     Dates: start: 20180518
  6. INFLECTRA [Suspect]
     Active Substance: INFLIXIMAB-DYYB
     Dosage: 400 MG, (0, 2, 6 THEN EVERY 8 WEEKS)
     Route: 042
     Dates: start: 20180716
  7. INFLECTRA [Suspect]
     Active Substance: INFLIXIMAB-DYYB
     Dosage: 750 MG EVERY 4 WEEKS
     Route: 042
     Dates: start: 20190103, end: 20190103
  8. COVERSYL /00790702/ [Concomitant]
     Active Substance: PERINDOPRIL
     Dosage: 2 MG
     Route: 048
  9. VERSED [Concomitant]
     Active Substance: MIDAZOLAM HYDROCHLORIDE
     Indication: SEDATION
     Dosage: 3 MG
     Dates: start: 201806, end: 201806
  10. INFLECTRA [Suspect]
     Active Substance: INFLIXIMAB-DYYB
     Indication: COLITIS ULCERATIVE
     Dosage: 400 MG,  (0, 2, 6 THEN EVERY 8 WEEKS)
     Route: 042
     Dates: start: 20180601
  11. INFLECTRA [Suspect]
     Active Substance: INFLIXIMAB-DYYB
     Dosage: 400 MG, (Q 4 WEEKS);
     Route: 042
     Dates: start: 20181011
  12. INFLECTRA [Suspect]
     Active Substance: INFLIXIMAB-DYYB
     Dosage: 400 MG, (Q 4 WEEKS);
     Route: 042
     Dates: start: 20181203, end: 20181203
  13. MEZAVANT [Concomitant]
     Active Substance: MESALAMINE
     Dosage: 4.8 G, QD
     Route: 048
     Dates: start: 2008
  14. VITAMIN D NOS [Concomitant]
     Active Substance: VITAMIN D NOS
     Dosage: UNK
  15. INFLECTRA [Suspect]
     Active Substance: INFLIXIMAB-DYYB
     Dosage: 400 MG, (0, 2, 6 THEN EVERY 8 WEEKS)
     Route: 042
     Dates: start: 20181011, end: 20181011
  16. PREDNISONE. [Concomitant]
     Active Substance: PREDNISONE
     Dosage: 7 MG, QD, TAPERING DOWN DOSE BY 2MG EACH WEEK
     Route: 048
  17. FENTANYL. [Concomitant]
     Active Substance: FENTANYL
     Indication: SEDATION
     Dosage: 50 MICROGRAM
     Dates: start: 201806, end: 201806
  18. INFLECTRA [Suspect]
     Active Substance: INFLIXIMAB-DYYB
     Dosage: 400 MG, (0, 2, 6 THEN EVERY 8 WEEKS)
     Route: 042
     Dates: start: 20180910
  19. INFLECTRA [Suspect]
     Active Substance: INFLIXIMAB-DYYB
     Dosage: 400 MG, (Q 4 WEEKS);
     Route: 042
     Dates: start: 20181108
  20. METOPROLOL. [Concomitant]
     Active Substance: METOPROLOL
     Dosage: 50 MG, QD
     Route: 048
  21. 5 ASA LP [Concomitant]
     Dosage: 400 MG, QD
     Route: 048
     Dates: start: 20180518
  22. PENTASA [Concomitant]
     Active Substance: MESALAMINE
     Indication: MYOCARDIAL INFARCTION
     Dosage: UNK
  23. INFLECTRA [Suspect]
     Active Substance: INFLIXIMAB-DYYB
     Dosage: 10 MG/KG, (EVERY 4 WEEKS)
     Route: 042
  24. ATORVASTATIN [Concomitant]
     Active Substance: ATORVASTATIN
     Dosage: 80 MG, QD
     Route: 048
  25. PREDNISONE. [Concomitant]
     Active Substance: PREDNISONE
     Dosage: 10 MG, QD
     Route: 048
  26. PANTOLOC [PANTOPRAZOLE] [Concomitant]
     Active Substance: PANTOPRAZOLE SODIUM
     Dosage: 40 MG, QD
     Route: 048
  27. INFLECTRA [Suspect]
     Active Substance: INFLIXIMAB-DYYB
     Dosage: 400 MG,  (0, 2, 6 THEN EVERY 8 WEEKS)
     Route: 042
     Dates: start: 20180604, end: 20180910
  28. CITALOPRAM [Concomitant]
     Active Substance: CITALOPRAM HYDROBROMIDE
     Dosage: 10 MG, QD
     Route: 048
  29. ASACOL [Concomitant]
     Active Substance: MESALAMINE
     Dosage: 1.2 G
     Route: 048
  30. CALCIUM [Concomitant]
     Active Substance: CALCIUM
     Dosage: UNK

REACTIONS (28)
  - Nausea [Recovered/Resolved]
  - Low density lipoprotein decreased [Not Recovered/Not Resolved]
  - Feeding disorder [Unknown]
  - Vitamin B12 decreased [Unknown]
  - Serum ferritin decreased [Not Recovered/Not Resolved]
  - Red blood cells urine positive [Recovered/Resolved]
  - Product dose omission [Unknown]
  - Feeling abnormal [Unknown]
  - Condition aggravated [Not Recovered/Not Resolved]
  - Vomiting [Unknown]
  - Blood iron decreased [Not Recovered/Not Resolved]
  - Haemoglobin decreased [Unknown]
  - Haematocrit decreased [Unknown]
  - Mean cell volume decreased [Unknown]
  - Therapeutic response shortened [Not Recovered/Not Resolved]
  - Transferrin saturation decreased [Not Recovered/Not Resolved]
  - Blood pressure decreased [Unknown]
  - Heart rate irregular [Unknown]
  - Back pain [Recovering/Resolving]
  - Product use issue [Unknown]
  - Malaise [Unknown]
  - Drug ineffective [Not Recovered/Not Resolved]
  - Blood pressure fluctuation [Unknown]
  - Renal disorder [Unknown]
  - Blood albumin decreased [Not Recovered/Not Resolved]
  - C-reactive protein increased [Recovered/Resolved]
  - Asthenia [Unknown]
  - Extra dose administered [Unknown]

NARRATIVE: CASE EVENT DATE: 2018
